FAERS Safety Report 6756383-0 (Version None)
Quarter: 2010Q2

REPORT INFORMATION
  Report Type: 
  Country: None (occurrence: None)
  Receive Date: 20100604
  Receipt Date: 20100504
  Transmission Date: 20101027
  Serious: Yes (Life-Threatening, Hospitalization, Other)
  Sender: FDA-Public Use
  Company Number: US-ROCHE-707248

PATIENT
  Sex: Male
  Weight: 124.3 kg

DRUGS (5)
  1. ACTEMRA [Suspect]
     Indication: RHEUMATOID ARTHRITIS
     Route: 042
     Dates: start: 20100407
  2. IMURAN [Concomitant]
  3. MIRTAZAPINE [Concomitant]
     Dosage: DOSE: 60
  4. LORTAB [Concomitant]
  5. PREDNISONE [Concomitant]
     Route: 048

REACTIONS (2)
  - ASTHMA [None]
  - MYOCARDIAL INFARCTION [None]
